FAERS Safety Report 7279057-9 (Version None)
Quarter: 2011Q1

REPORT INFORMATION
  Report Type: 
  Country: None (occurrence: None)
  Receive Date: 20110207
  Receipt Date: 20110127
  Transmission Date: 20110831
  Serious: Yes (Death)
  Sender: FDA-Public Use
  Company Number: IT-CELGENEUS-083-21880-10122845

PATIENT
  Sex: Female

DRUGS (5)
  1. RITUXIMAB [Concomitant]
     Indication: B-CELL LYMPHOMA
     Route: 065
     Dates: start: 20100727, end: 20100727
  2. SOLDESAM [Concomitant]
     Indication: B-CELL LYMPHOMA
     Route: 065
  3. REVLIMID [Suspect]
     Indication: B-CELL LYMPHOMA
     Route: 048
     Dates: start: 20100730, end: 20101011
  4. REVLIMID [Suspect]
     Route: 048
  5. RITUXIMAB [Concomitant]
     Route: 065
     Dates: start: 20100825, end: 20100825

REACTIONS (1)
  - B-CELL LYMPHOMA [None]
